FAERS Safety Report 17988291 (Version 2)
Quarter: 2020Q3

REPORT INFORMATION
  Report Type: Spontaneous
  Country: US (occurrence: US)
  Receive Date: 20200707
  Receipt Date: 20200720
  Transmission Date: 20201103
  Serious: No
  Sender: FDA-Public Use
  Company Number: US-VERTEX PHARMACEUTICALS-2020-014228

PATIENT
  Sex: Male
  Weight: 79 kg

DRUGS (19)
  1. VITAMIN E [Concomitant]
     Active Substance: .ALPHA.-TOCOPHEROL
     Dosage: 400 UNITS, FREQ UNK
  2. CALCIUM + VITAMIN D3 [Concomitant]
     Active Substance: CALCIUM CARBONATE\CHOLECALCIFEROL
  3. VITAMIN D3 [Concomitant]
     Active Substance: CHOLECALCIFEROL
  4. FERROUS SULFATE. [Concomitant]
     Active Substance: FERROUS SULFATE
     Dosage: 65MG, FREQ UNK
  5. PREDNISONE. [Concomitant]
     Active Substance: PREDNISONE
     Dosage: 20MG, FREQ UNK
  6. ADVAIR HFA [Concomitant]
     Active Substance: FLUTICASONE PROPIONATE\SALMETEROL XINAFOATE
  7. HYDROMORPHONE HCL [Concomitant]
     Active Substance: HYDROMORPHONE HYDROCHLORIDE
     Dosage: 2MG, FREQ UNK
  8. VITAMIN K [MENADIONE] [Concomitant]
     Active Substance: MENADIONE
  9. COLISTIN [Concomitant]
     Active Substance: COLISTIN
  10. PULMOZYME [Concomitant]
     Active Substance: DORNASE ALFA
     Dosage: 1MG/ML SOLUTION, FREQ UNK
  11. URSODIOL. [Concomitant]
     Active Substance: URSODIOL
     Dosage: 300MG, FREQ UNK.
  12. HYPERSAL [Concomitant]
     Active Substance: SODIUM CHLORIDE
  13. CREON [Concomitant]
     Active Substance: PANCRELIPASE AMYLASE\PANCRELIPASE LIPASE\PANCRELIPASE PROTEASE
  14. TRIKAFTA [Suspect]
     Active Substance: ELEXACAFTOR\IVACAFTOR\TEZACAFTOR
     Indication: CYSTIC FIBROSIS
     Dosage: 2 TABLETS (100MG ELEXACAFTOR/50MG TEZACAFTOR/75MG IVACAFTOR) AM; 1 TABLET (150MG IVACAFTOR) PM
     Route: 048
     Dates: start: 201910
  15. REMERON [Concomitant]
     Active Substance: MIRTAZAPINE
     Dosage: 15MG, FREQ UNK
  16. MS CONTIN [Concomitant]
     Active Substance: MORPHINE SULFATE
     Dosage: 30MG, FREQ UNK
  17. PROAIR HFA [Concomitant]
     Active Substance: ALBUTEROL SULFATE
  18. FAMOTIDINE. [Concomitant]
     Active Substance: FAMOTIDINE
     Dosage: 20MG, FREQ UNK
  19. OMEPRAZOLE. [Concomitant]
     Active Substance: OMEPRAZOLE
     Dosage: 20 MG, FREQ UNK

REACTIONS (2)
  - Infective pulmonary exacerbation of cystic fibrosis [Unknown]
  - Inflammation [Unknown]

NARRATIVE: CASE EVENT DATE: 2020
